FAERS Safety Report 15756952 (Version 2)
Quarter: 2020Q2

REPORT INFORMATION
  Report Type: Report from Study
  Country: TW (occurrence: TW)
  Receive Date: 20181224
  Receipt Date: 20200626
  Transmission Date: 20200713
  Serious: Yes (Other)
  Sender: FDA-Public Use
  Company Number: TW-ASTRAZENECA-2018SF67039

PATIENT
  Age: 85 Year
  Sex: Male

DRUGS (3)
  1. IRESSA [Suspect]
     Active Substance: GEFITINIB
     Indication: NON-SMALL CELL LUNG CANCER
     Route: 048
  2. ERLOTINIB [Suspect]
     Active Substance: ERLOTINIB
     Indication: NON-SMALL CELL LUNG CANCER
     Route: 065
  3. TAGRISSO [Suspect]
     Active Substance: OSIMERTINIB
     Indication: NON-SMALL CELL LUNG CANCER
     Route: 048

REACTIONS (4)
  - Malignant neoplasm progression [Unknown]
  - Acquired gene mutation [Unknown]
  - Drug resistance [Unknown]
  - Metastases to lung [Unknown]
